FAERS Safety Report 25535195 (Version 1)
Quarter: 2025Q3

REPORT INFORMATION
  Report Type: Spontaneous
  Country: US (occurrence: US)
  Receive Date: 20250709
  Receipt Date: 20250709
  Transmission Date: 20251020
  Serious: No
  Sender: MADRIGAL PHARMACEUTICALS
  Company Number: US-MADRIGAL PHARMACEUTICALS, INC-2025REZ6584

PATIENT

DRUGS (2)
  1. REZDIFFRA [Suspect]
     Active Substance: RESMETIROM
     Indication: Product used for unknown indication
     Route: 065
  2. PSYLLIUM [Concomitant]
     Active Substance: PLANTAGO SEED

REACTIONS (2)
  - Muscle spasms [Recovered/Resolved]
  - Nausea [Recovered/Resolved]
